FAERS Safety Report 23812534 (Version 2)
Quarter: 2024Q2

REPORT INFORMATION
  Report Type: Spontaneous
  Country: US (occurrence: US)
  Receive Date: 20240503
  Receipt Date: 20240510
  Transmission Date: 20240715
  Serious: No
  Sender: FDA-Public Use
  Company Number: US-GLAXOSMITHKLINE-US2024AMR053873

PATIENT
  Sex: Female
  Weight: 72.562 kg

DRUGS (1)
  1. ZEJULA [Suspect]
     Active Substance: NIRAPARIB
     Indication: Ovarian cancer
     Dosage: 300 MG, QD
     Route: 048
     Dates: start: 20240415

REACTIONS (10)
  - Photosensitivity reaction [Recovered/Resolved]
  - Thermal burn [Recovered/Resolved]
  - Constipation [Recovering/Resolving]
  - Dyspnoea [Recovering/Resolving]
  - Dizziness [Recovering/Resolving]
  - Dry mouth [Recovering/Resolving]
  - Chapped lips [Recovering/Resolving]
  - Night sweats [Recovering/Resolving]
  - Abdominal distension [Recovering/Resolving]
  - Lung disorder [Recovering/Resolving]
